FAERS Safety Report 10252356 (Version 1)
Quarter: 2014Q2

REPORT INFORMATION
  Report Type: Other
  Country: DE (occurrence: DE)
  Receive Date: 20140623
  Receipt Date: 20140623
  Transmission Date: 20141212
  Serious: Yes (Life-Threatening, Hospitalization)
  Sender: FDA-Public Use
  Company Number: DE-ASTELLAS-2014US007143

PATIENT
  Age: 70 Year
  Sex: Female

DRUGS (1)
  1. ERLOTINIB [Suspect]
     Indication: LUNG ADENOCARCINOMA
     Route: 048
     Dates: start: 201405, end: 201406

REACTIONS (1)
  - Haemolysis [Not Recovered/Not Resolved]
